FAERS Safety Report 4318417-2 (Version None)
Quarter: 2004Q1

REPORT INFORMATION
  Report Type: 
  Country: None (occurrence: None)
  Receive Date: 20040315
  Receipt Date: 20040227
  Transmission Date: 20041129
  Serious: Yes (Life-Threatening, Hospitalization)
  Sender: FDA-Public Use
  Company Number: 8005708

PATIENT
  Age: 17 Year
  Sex: Female
  Weight: 90 kg

DRUGS (3)
  1. KEPPRA [Suspect]
  2. TIMONIL [Suspect]
  3. TRILPETAL ^CIBA-GEIGY^ [Suspect]

REACTIONS (2)
  - SOMNOLENCE [None]
  - SUICIDE ATTEMPT [None]
